FAERS Safety Report 8508234-1 (Version None)
Quarter: 2012Q3

REPORT INFORMATION
  Report Type: 
  Country: None (occurrence: None)
  Receive Date: 20120713
  Receipt Date: 20120702
  Transmission Date: 20120928
  Serious: Yes (Hospitalization)
  Sender: FDA-Public Use
  Company Number: DE-BRISTOL-MYERS SQUIBB COMPANY-16525768

PATIENT
  Age: 76 Year
  Sex: Male
  Weight: 84 kg

DRUGS (10)
  1. OXALIPLATIN [Concomitant]
     Indication: COLORECTAL CANCER METASTATIC
     Dosage: 02MAY12:(85MG/M2 ONCE,999MG/M2,1 IN 1 WK)
     Route: 042
     Dates: start: 20120125, end: 20120501
  2. LEUCOVORIN CALCIUM [Concomitant]
     Indication: COLORECTAL CANCER METASTATIC
     Dosage: 02MAY12-02MAY12(2300MG/M2,ONCE),02MAY12-STOPPD(99MG/M2,1IN1WK)
     Route: 042
     Dates: start: 20120125, end: 20120501
  3. METFORMIN HYDROCHLORIDE [Concomitant]
     Indication: TYPE 2 DIABETES MELLITUS
     Route: 048
  4. CRANOC [Concomitant]
     Route: 048
  5. ERBITUX [Suspect]
     Indication: COLORECTAL CANCER METASTATIC
     Dosage: INITIAL DOSE:400 MG/M2 01FEB-07MAR12(35DY),21MAR12-28MAR12(6DY):250MG/M2, 02MAY12-ONG:475MG/M2
     Route: 042
     Dates: start: 20120125
  6. LISODURA [Concomitant]
     Route: 048
  7. ASPIRIN [Concomitant]
     Route: 048
  8. FLUOROURACIL [Concomitant]
     Indication: COLORECTAL CANCER METASTATIC
     Dosage: IV BOLUS 25JAN12-01MAY12:2300MG/M2 AND 760MG/M2
     Route: 042
     Dates: start: 20120125, end: 20120501
  9. AMLODIPINE [Concomitant]
     Indication: HYPERTENSION
     Route: 048
  10. CLOPIDOGREL [Concomitant]
     Indication: ANTICOAGULANT THERAPY
     Route: 048

REACTIONS (3)
  - DECREASED APPETITE [None]
  - ANAEMIA [None]
  - DIZZINESS [None]
